FAERS Safety Report 12633355 (Version 2)
Quarter: 2016Q3

REPORT INFORMATION
  Report Type: Spontaneous
  Country: US (occurrence: US)
  Receive Date: 20160808
  Receipt Date: 20160808
  Transmission Date: 20161109
  Serious: No
  Sender: FDA-Public Use
  Company Number: US-BEH-2016060672

PATIENT
  Sex: Female
  Weight: 62 kg

DRUGS (27)
  1. EPIPEN [Concomitant]
     Active Substance: EPINEPHRINE
  2. LYRICA [Concomitant]
     Active Substance: PREGABALIN
  3. HYOSCYAMINE SULFATE. [Concomitant]
     Active Substance: HYOSCYAMINE SULFATE
  4. BRIMONIDINE TARTRATE. [Concomitant]
     Active Substance: BRIMONIDINE TARTRATE
  5. XOPENEX [Concomitant]
     Active Substance: LEVALBUTEROL HYDROCHLORIDE
  6. THEOCHRON [Concomitant]
     Active Substance: THEOPHYLLINE ANHYDROUS
  7. CLONIDINE. [Concomitant]
     Active Substance: CLONIDINE
  8. LIDOCAINE. [Concomitant]
     Active Substance: LIDOCAINE
  9. BYSTOLIC [Concomitant]
     Active Substance: NEBIVOLOL HYDROCHLORIDE
  10. NORCO [Concomitant]
     Active Substance: ACETAMINOPHEN\HYDROCODONE BITARTRATE
  11. HIZENTRA [Suspect]
     Active Substance: HUMAN IMMUNOGLOBULIN G
     Indication: IMMUNODEFICIENCY COMMON VARIABLE
     Route: 058
  12. ACETAMINOPHEN. [Concomitant]
     Active Substance: ACETAMINOPHEN
  13. IBUPROFEN. [Concomitant]
     Active Substance: IBUPROFEN
  14. MUCINEX [Concomitant]
     Active Substance: GUAIFENESIN
  15. DIPHENHYDRAMINE. [Concomitant]
     Active Substance: DIPHENHYDRAMINE
  16. ADVAIR HFA [Concomitant]
     Active Substance: FLUTICASONE PROPIONATE\SALMETEROL XINAFOATE
  17. LIDOCAINE HCL VISCOUS [Concomitant]
  18. COLCRYS [Concomitant]
     Active Substance: COLCHICINE
  19. HYDROCORTISONE-ALOE CREAM [Concomitant]
  20. CYPROHEPTADINE. [Concomitant]
     Active Substance: CYPROHEPTADINE
  21. SUMATRIPTAN SUCCINATE. [Concomitant]
     Active Substance: SUMATRIPTAN SUCCINATE
  22. IPRATROPIUM BROMIDE. [Concomitant]
     Active Substance: IPRATROPIUM BROMIDE
  23. NYSTATIN. [Concomitant]
     Active Substance: NYSTATIN
  24. HIZENTRA [Suspect]
     Active Substance: HUMAN IMMUNOGLOBULIN G
     Indication: IMMUNODEFICIENCY COMMON VARIABLE
     Route: 058
  25. BUDESONIDE. [Concomitant]
     Active Substance: BUDESONIDE
  26. TRIAMCINOLONE ACETONIDE. [Concomitant]
     Active Substance: TRIAMCINOLONE ACETONIDE
  27. AMITRIPTYLINE [Concomitant]
     Active Substance: AMITRIPTYLINE

REACTIONS (1)
  - Ear infection [Unknown]
